FAERS Safety Report 14510952 (Version 1)
Quarter: 2018Q1

REPORT INFORMATION
  Report Type: Spontaneous
  Country: US (occurrence: US)
  Receive Date: 20180209
  Receipt Date: 20180209
  Transmission Date: 20180509
  Serious: Yes (Life-Threatening, Other)
  Sender: FDA-Public Use
  Company Number: US-BAYER-2018-022376

PATIENT
  Age: 57 Year
  Sex: Female

DRUGS (4)
  1. CLOPIDOGREL [Suspect]
     Active Substance: CLOPIDOGREL BISULFATE
     Dosage: 75 MG, UNK
  2. WARFARIN [Suspect]
     Active Substance: WARFARIN
  3. MILRINONE [Concomitant]
     Active Substance: MILRINONE
  4. ACETYLSALICYLIC ACID({=100 MG) [Suspect]
     Active Substance: ASPIRIN
     Dosage: 81 MG, UNK

REACTIONS (5)
  - Rectal haemorrhage [Recovered/Resolved]
  - Labelled drug-drug interaction medication error [Recovered/Resolved]
  - Anaemia [Recovered/Resolved]
  - Melaena [Recovered/Resolved]
  - Drug administration error [Recovered/Resolved]
